FAERS Safety Report 15240176 (Version 2)
Quarter: 2018Q3

REPORT INFORMATION
  Report Type: Report from Study
  Country: None (occurrence: BE)
  Receive Date: 20180803
  Receipt Date: 20180914
  Transmission Date: 20181010
  Serious: Yes (Death)
  Sender: FDA-Public Use
  Company Number: BE-ABBVIE-18K-013-2441600-00

PATIENT
  Age: 73 Year

DRUGS (1)
  1. VENCLYXTO [Suspect]
     Active Substance: VENETOCLAX
     Indication: PLASMA CELL MYELOMA
     Route: 048
     Dates: start: 201807

REACTIONS (2)
  - Plasma cell myeloma [Fatal]
  - Off label use [Unknown]

NARRATIVE: CASE EVENT DATE: 201807
